FAERS Safety Report 6092517-1 (Version None)
Quarter: 2009Q1

REPORT INFORMATION
  Report Type: 
  Country: None (occurrence: None)
  Receive Date: 20090223
  Receipt Date: 20090223
  Transmission Date: 20090719
  Serious: Yes (Hospitalization)
  Sender: FDA-Public Use
  Company Number: None

PATIENT
  Age: 54 Year
  Sex: Female
  Weight: 85.7 kg

DRUGS (9)
  1. XIGRIS [Suspect]
     Indication: ISCHAEMIC STROKE
     Dosage: 860MCG,BOLUS+DRIP X1, IV
     Route: 042
     Dates: start: 20090203
  2. LISINOPRIL [Concomitant]
  3. TYLENOL [Concomitant]
  4. IBUPROPHEN [Concomitant]
  5. IV MANNITOL [Concomitant]
  6. NORVASC [Concomitant]
  7. ASPIRIN [Concomitant]
  8. LIPITOR [Concomitant]
  9. LOVENOX [Concomitant]

REACTIONS (3)
  - BRAIN HERNIATION [None]
  - CEREBROVASCULAR ACCIDENT [None]
  - LETHARGY [None]
